FAERS Safety Report 12256410 (Version 2)
Quarter: 2016Q2

REPORT INFORMATION
  Report Type: Report from Study
  Country: AR (occurrence: AR)
  Receive Date: 20160412
  Receipt Date: 20160425
  Transmission Date: 20160815
  Serious: Yes (Other)
  Sender: FDA-Public Use
  Company Number: PHHY2016AR046743

PATIENT
  Age: 74 Year
  Sex: Female

DRUGS (2)
  1. EXFORGE [Suspect]
     Active Substance: AMLODIPINE BESYLATE\VALSARTAN
     Indication: HYPERTENSION
     Dosage: 1 DF, QD (160 VALSARTAN, 10 AMLODIPINE) (UNITS UNSPECIFIED)
     Route: 065
  2. EXFORGE [Suspect]
     Active Substance: AMLODIPINE BESYLATE\VALSARTAN
     Indication: ARRHYTHMIA

REACTIONS (11)
  - Fall [Recovering/Resolving]
  - Mobility decreased [Recovering/Resolving]
  - Anxiety [Recovering/Resolving]
  - Tibia fracture [Recovering/Resolving]
  - Memory impairment [Unknown]
  - Abasia [Recovering/Resolving]
  - Disorientation [Unknown]
  - Injury [Recovering/Resolving]
  - Inflammation [Recovering/Resolving]
  - Ankle fracture [Recovering/Resolving]
  - Fibula fracture [Recovering/Resolving]

NARRATIVE: CASE EVENT DATE: 201602
